FAERS Safety Report 14812877 (Version 2)
Quarter: 2018Q2

REPORT INFORMATION
  Report Type: Spontaneous
  Country: US (occurrence: US)
  Receive Date: 20180426
  Receipt Date: 20180522
  Transmission Date: 20180711
  Serious: Yes (Hospitalization, Other)
  Sender: FDA-Public Use
  Company Number: US-ASTRAZENECA-2018SE54146

PATIENT
  Age: 66 Year
  Sex: Female
  Weight: 69.4 kg

DRUGS (6)
  1. NASONEX OTC [Concomitant]
     Indication: SINUS DISORDER
     Dosage: AS REQUIRED
     Route: 065
  2. TUDORZA PRESSAIR [Suspect]
     Active Substance: ACLIDINIUM BROMIDE
     Indication: BRONCHOSPASM
     Dosage: 400 UG/INHALATION, ONE PUFF TWICE DAILY
     Route: 055
     Dates: start: 201304
  3. ADVAIR HFA [Concomitant]
     Active Substance: FLUTICASONE PROPIONATE\SALMETEROL XINAFOATE
     Dosage: UNKNOWN
     Route: 055
  4. XOPENEX [Concomitant]
     Active Substance: LEVALBUTEROL HYDROCHLORIDE
     Dosage: AS REQUIRED
     Route: 055
  5. MUCINEX OTC [Concomitant]
     Indication: PRODUCTIVE COUGH
     Dosage: AS REQUIRED
     Route: 048
  6. TUDORZA PRESSAIR [Suspect]
     Active Substance: ACLIDINIUM BROMIDE
     Indication: CHRONIC OBSTRUCTIVE PULMONARY DISEASE
     Dosage: 400 UG/INHALATION, ONE PUFF TWICE DAILY
     Route: 055
     Dates: start: 201304

REACTIONS (10)
  - Pneumonia [Unknown]
  - Intentional product misuse [Unknown]
  - Product use in unapproved indication [Not Recovered/Not Resolved]
  - Device malfunction [Unknown]
  - Drug dose omission [Recovered/Resolved]
  - Chronic obstructive pulmonary disease [Unknown]
  - Off label use [Not Recovered/Not Resolved]
  - Vocal cord dysfunction [Unknown]
  - Bladder irritation [Unknown]
  - Sinus disorder [Unknown]

NARRATIVE: CASE EVENT DATE: 2013
